FAERS Safety Report 8405444-9 (Version None)
Quarter: 2012Q2

REPORT INFORMATION
  Report Type: 
  Country: None (occurrence: None)
  Receive Date: 20120604
  Receipt Date: 20120524
  Transmission Date: 20120825
  Serious: Yes (Hospitalization)
  Sender: FDA-Public Use
  Company Number: US-BIOGENIDEC-2012BI019030

PATIENT
  Age: 63 Year
  Sex: Male

DRUGS (1)
  1. TYSABRI [Suspect]
     Indication: MULTIPLE SCLEROSIS
     Route: 042
     Dates: start: 20080716

REACTIONS (5)
  - CONFUSIONAL STATE [None]
  - NEPHROLITHIASIS [None]
  - MULTIPLE SCLEROSIS RELAPSE [None]
  - MEMORY IMPAIRMENT [None]
  - DEPRESSED LEVEL OF CONSCIOUSNESS [None]
